FAERS Safety Report 7785489-2 (Version None)
Quarter: 2011Q3

REPORT INFORMATION
  Report Type: 
  Country: None (occurrence: None)
  Receive Date: 20110929
  Receipt Date: 20110926
  Transmission Date: 20111222
  Serious: Yes (Death, Other)
  Sender: FDA-Public Use
  Company Number: PHHY2011GB85068

PATIENT
  Age: 75 Year
  Sex: Male
  Weight: 60 kg

DRUGS (5)
  1. LISINOPRIL [Concomitant]
     Dosage: 10 MG, UNK
     Route: 048
  2. TRAMADOL [Concomitant]
     Dosage: 50 MG, UNK
     Route: 048
  3. WARFARIN SODIUM [Suspect]
     Indication: ATRIAL FIBRILLATION
     Route: 048
  4. QUININE SULFATE [Concomitant]
     Dosage: 200 MG, UNK
     Route: 048
  5. DIGOXIN [Concomitant]
     Indication: ATRIAL FIBRILLATION
     Dosage: 250 UG, UNK
     Route: 048

REACTIONS (6)
  - CEREBRAL HAEMORRHAGE [None]
  - CARDIAC FAILURE CONGESTIVE [None]
  - LOSS OF CONSCIOUSNESS [None]
  - FALL [None]
  - ATRIAL FIBRILLATION [None]
  - HEMIPARESIS [None]
